FAERS Safety Report 17689575 (Version 1)
Quarter: 2020Q2

REPORT INFORMATION
  Report Type: Spontaneous
  Country: US (occurrence: US)
  Receive Date: 20200421
  Receipt Date: 20200421
  Transmission Date: 20200714
  Serious: Yes (Other)
  Sender: FDA-Public Use
  Company Number: None

PATIENT
  Age: 37 Year
  Sex: Female
  Weight: 104.4 kg

DRUGS (2)
  1. GAMMAPLEX [Suspect]
     Active Substance: HUMAN IMMUNOGLOBULIN G
     Indication: AUTONOMIC NEUROPATHY
     Route: 042
     Dates: start: 20200323, end: 20200324
  2. GAMMAPLEX [Suspect]
     Active Substance: HUMAN IMMUNOGLOBULIN G
     Indication: AUTONOMIC NEUROPATHY
     Route: 042
     Dates: start: 20200323, end: 20200324

REACTIONS (9)
  - Nausea [None]
  - Headache [None]
  - Pain [None]
  - Infusion related reaction [None]
  - Blood pressure increased [None]
  - Dehydration [None]
  - Vomiting [None]
  - Meningitis aseptic [None]
  - Photosensitivity reaction [None]

NARRATIVE: CASE EVENT DATE: 20200324
